FAERS Safety Report 15713627 (Version 1)
Quarter: 2018Q4

REPORT INFORMATION
  Report Type: Spontaneous
  Country: US (occurrence: US)
  Receive Date: 20181212
  Receipt Date: 20181212
  Transmission Date: 20190205
  Serious: Yes (Other)
  Sender: FDA-Public Use
  Company Number: None

PATIENT
  Sex: Male
  Weight: 84.6 kg

DRUGS (18)
  1. METOPROLOL SUCCINATE ER 100 MG [Concomitant]
  2. IPRATROPIUM NASAL [Concomitant]
  3. AZELASTINE. [Concomitant]
     Active Substance: AZELASTINE HYDROCHLORIDE
  4. CHROMIUM [Concomitant]
     Active Substance: CHROMIC CHLORIDE\CHROMIUM
  5. ATORVASTATIN [Concomitant]
     Active Substance: ATORVASTATIN
  6. COENZYME Q10 [Concomitant]
     Active Substance: UBIDECARENONE
  7. FUROSEMIDE. [Concomitant]
     Active Substance: FUROSEMIDE
  8. JANUVIA [Concomitant]
     Active Substance: SITAGLIPTIN PHOSPHATE
  9. LEVOTHYROXINE 75 MCG [Concomitant]
  10. WARFARIN [Concomitant]
     Active Substance: WARFARIN
  11. VALSARTAN. [Suspect]
     Active Substance: VALSARTAN
     Indication: DIABETES MELLITUS
     Route: 048
     Dates: start: 20120101, end: 20181002
  12. ADVAIR DISKUS [Concomitant]
     Active Substance: FLUTICASONE PROPIONATE\SALMETEROL XINAFOATE
  13. ASPIRIN. [Concomitant]
     Active Substance: ASPIRIN
  14. METFORMIN [Concomitant]
     Active Substance: METFORMIN HYDROCHLORIDE
  15. PROCHLORPERAZINE. [Concomitant]
     Active Substance: PROCHLORPERAZINE
  16. VALSARTAN. [Suspect]
     Active Substance: VALSARTAN
     Indication: HYPERTENSION
     Route: 048
     Dates: start: 20120101, end: 20181002
  17. MAGNESIUM OXIDE 200 MG [Concomitant]
  18. SOTALOL. [Concomitant]
     Active Substance: SOTALOL

REACTIONS (2)
  - Bladder cancer [None]
  - Disease complication [None]
